FAERS Safety Report 5072220-7 (Version None)
Quarter: 2006Q3

REPORT INFORMATION
  Report Type: 
  Country: None (occurrence: None)
  Receive Date: 20060710
  Receipt Date: 20050517
  Transmission Date: 20061208
  Serious: Yes (Hospitalization)
  Sender: FDA-Public Use
  Company Number: PHEH2005US05657

PATIENT
  Age: 75 Year
  Sex: Male

DRUGS (2)
  1. GLEEVEC [Suspect]
     Dosage: SEE IMAGE
     Route: 048
     Dates: start: 20010101, end: 20040601
  2. GLEEVEC [Suspect]
     Dosage: SEE IMAGE
     Route: 048
     Dates: start: 20040601

REACTIONS (3)
  - ANAEMIA [None]
  - GAIT DISTURBANCE [None]
  - MYALGIA [None]
